FAERS Safety Report 6049520-7 (Version None)
Quarter: 2009Q1

REPORT INFORMATION
  Report Type: 
  Country: None (occurrence: None)
  Receive Date: 20090121
  Receipt Date: 20090108
  Transmission Date: 20090719
  Serious: Yes (Disabling)
  Sender: FDA-Public Use
  Company Number: 2009AP000068

PATIENT
  Age: 43 Year
  Sex: Female

DRUGS (3)
  1. RISPERIDONE [Suspect]
     Indication: MANIA
     Dosage: 2 MG; PO
     Route: 048
     Dates: start: 20081113
  2. DIAZEPAM [Concomitant]
  3. ZOPICLONE (ZOPICLONE) [Concomitant]

REACTIONS (3)
  - EYE SWELLING [None]
  - RASH [None]
  - SKIN IRRITATION [None]
